FAERS Safety Report 6676493-6 (Version None)
Quarter: 2010Q2

REPORT INFORMATION
  Report Type: 
  Country: None (occurrence: None)
  Receive Date: 20100412
  Receipt Date: 20100330
  Transmission Date: 20101027
  Serious: Yes (Hospitalization)
  Sender: FDA-Public Use
  Company Number: US-SANOFI-AVENTIS-2010SA018517

PATIENT
  Age: 75 Year
  Sex: Female

DRUGS (3)
  1. MULTAQ [Suspect]
     Indication: ATRIAL FIBRILLATION
     Route: 048
     Dates: start: 20100301, end: 20100329
  2. VYTORIN [Suspect]
     Dosage: 10/80
     Route: 065
     Dates: start: 20070101
  3. NORVASC [Concomitant]

REACTIONS (6)
  - DRUG INTERACTION [None]
  - LIVER FUNCTION TEST ABNORMAL [None]
  - MALAISE [None]
  - MUSCLE FATIGUE [None]
  - MYALGIA [None]
  - RHABDOMYOLYSIS [None]
